FAERS Safety Report 4609302-7 (Version None)
Quarter: 2005Q2

REPORT INFORMATION
  Report Type: 
  Country: None (occurrence: None)
  Receive Date: 20050301
  Receipt Date: 20041206
  Transmission Date: 20051028
  Serious: No
  Sender: FDA-Public Use
  Company Number: WAES 0409USA01275

PATIENT
  Age: 82 Year
  Sex: Female

DRUGS (9)
  1. ZETIA [Suspect]
     Indication: BLOOD CHOLESTEROL INCREASED
     Dosage: 10 MG/DAILY/PO
     Route: 048
     Dates: start: 20040101
  2. FOSAMAX [Concomitant]
  3. HYDRODIURIL [Concomitant]
  4. TOPROL-XL [Concomitant]
  5. ASPIRIN [Concomitant]
  6. CALCIUM (UNSPECIFIED) [Concomitant]
  7. CAPTOPRIL [Concomitant]
  8. LOVASTATIN [Concomitant]
  9. POTASSIUM (UNSPECIFIED) [Concomitant]

REACTIONS (1)
  - LIVER FUNCTION TEST ABNORMAL [None]
